FAERS Safety Report 25139721 (Version 1)
Quarter: 2025Q1

REPORT INFORMATION
  Report Type: Spontaneous
  Country: NL (occurrence: NL)
  Receive Date: 20250331
  Receipt Date: 20250331
  Transmission Date: 20250408
  Serious: Yes (Life-Threatening, Hospitalization)
  Sender: ACCORD
  Company Number: None

PATIENT
  Age: 26 Year
  Sex: Female
  Weight: 79 kg

DRUGS (13)
  1. HYDROXYCHLOROQUINE [Suspect]
     Active Substance: HYDROXYCHLOROQUINE
     Indication: Rheumatoid arthritis
     Dosage: FIRST 2 X 200 LATER TO 1 X 200 MG
     Dates: start: 20241122
  2. METHYLPREDNISOLONE [Suspect]
     Active Substance: METHYLPREDNISOLONE
     Indication: Lupus nephritis
     Dates: start: 20241112
  3. MYCOPHENOLATE MOFETIL [Concomitant]
     Active Substance: MYCOPHENOLATE MOFETIL
  4. OMEPRAZOLE [Concomitant]
     Active Substance: OMEPRAZOLE
  5. OLMESARTAN [Concomitant]
     Active Substance: OLMESARTAN
  6. AMLODIPINE [Concomitant]
     Active Substance: AMLODIPINE BESYLATE
  7. PREDNISONE [Concomitant]
     Active Substance: PREDNISONE
  8. LORAZEPAM [Concomitant]
     Active Substance: LORAZEPAM
  9. OLANZAPINE [Concomitant]
     Active Substance: OLANZAPINE
  10. ALENDRONATE SODIUM\CHOLECALCIFEROL [Concomitant]
     Active Substance: ALENDRONATE SODIUM\CHOLECALCIFEROL
  11. COTRIMOXAZOLE [Concomitant]
     Active Substance: SULFAMETHOXAZOLE\TRIMETHOPRIM
  12. PHENPROCOUMON [Concomitant]
     Active Substance: PHENPROCOUMON
  13. ACTRAPID [Concomitant]
     Active Substance: INSULIN HUMAN

REACTIONS (4)
  - Psychotic disorder [Not Recovered/Not Resolved]
  - Hallucination [Not Recovered/Not Resolved]
  - Nightmare [Not Recovered/Not Resolved]
  - Delusion [Not Recovered/Not Resolved]
